FAERS Safety Report 15233340 (Version 2)
Quarter: 2018Q3

REPORT INFORMATION
  Report Type: Spontaneous
  Country: US (occurrence: US)
  Receive Date: 20180802
  Receipt Date: 20180911
  Transmission Date: 20181010
  Serious: No
  Sender: FDA-Public Use
  Company Number: US-ASTRAZENECA-2018SE86934

PATIENT
  Sex: Male
  Weight: 83.9 kg

DRUGS (2)
  1. BEVESPI AEROSPHERE [Suspect]
     Active Substance: FORMOTEROL FUMARATE\GLYCOPYRROLATE
     Indication: SINUS OPERATION
     Dosage: 2 PUFFS,TWO TIMES A DAY
     Route: 055
     Dates: start: 2018
  2. BEVESPI AEROSPHERE [Suspect]
     Active Substance: FORMOTEROL FUMARATE\GLYCOPYRROLATE
     Indication: CHRONIC OBSTRUCTIVE PULMONARY DISEASE
     Dosage: 2 PUFFS,TWO TIMES A DAY
     Route: 055
     Dates: start: 2018

REACTIONS (6)
  - Intentional product misuse [Unknown]
  - Wrong technique in product usage process [Unknown]
  - Paranasal sinus hyposecretion [Unknown]
  - Device defective [Unknown]
  - Weight increased [Unknown]
  - Dyspnoea [Unknown]
